FAERS Safety Report 12708655 (Version 1)
Quarter: 2016Q3

REPORT INFORMATION
  Report Type: Spontaneous
  Country: US (occurrence: US)
  Receive Date: 20160901
  Receipt Date: 20160901
  Transmission Date: 20161109
  Serious: Yes (Other)
  Sender: FDA-Public Use
  Company Number: PHEH2016US021657

PATIENT
  Age: 70 Year
  Sex: Male
  Weight: 77.4 kg

DRUGS (2)
  1. ZOMETA [Suspect]
     Active Substance: ZOLEDRONIC ACID
     Indication: PLASMA CELL MYELOMA
     Dosage: 4 OT, (EVERY 28 DAYS)
     Route: 042
     Dates: start: 20141111, end: 20160202
  2. REVLIMID [Suspect]
     Active Substance: LENALIDOMIDE
     Indication: PLASMA CELL MYELOMA
     Dosage: 25 MG, (14 DAYS ON, 7 DAYS OFF)
     Route: 048
     Dates: start: 20141111, end: 20150218

REACTIONS (4)
  - Colon cancer [Not Recovered/Not Resolved]
  - Anorectal discomfort [Not Recovered/Not Resolved]
  - Second primary malignancy [Not Recovered/Not Resolved]
  - Rectal cancer [Not Recovered/Not Resolved]

NARRATIVE: CASE EVENT DATE: 20160413
